FAERS Safety Report 10400503 (Version 1)
Quarter: 2014Q3

REPORT INFORMATION
  Report Type: Spontaneous
  Country: US (occurrence: US)
  Receive Date: 20140821
  Receipt Date: 20140821
  Transmission Date: 20150326
  Serious: No
  Sender: FDA-Public Use
  Company Number: US-ASTRAZENECA-2013SE71185

PATIENT
  Age: 74 Year
  Sex: Female
  Weight: 79.4 kg

DRUGS (5)
  1. MEDICATIONS FOR HIGH BLOOD PRESSURE [Concomitant]
     Indication: HYPERTENSION
  2. MEDICATIONS FOR COPD [Concomitant]
  3. MEDICATIONS FOR DIABETES [Concomitant]
     Active Substance: UNSPECIFIED INGREDIENT
     Indication: DIABETES MELLITUS
  4. MEDICATIONS FOR DEPRESSION [Concomitant]
     Indication: DEPRESSION
  5. SYMBICORT [Suspect]
     Active Substance: BUDESONIDE\FORMOTEROL FUMARATE DIHYDRATE
     Indication: CHRONIC OBSTRUCTIVE PULMONARY DISEASE
     Dosage: 320 MCG,TWO TIMES A DAY
     Route: 055
     Dates: start: 20130914, end: 20130916

REACTIONS (3)
  - Drug dose omission [Unknown]
  - Glossodynia [Recovered/Resolved]
  - Intentional product misuse [Recovered/Resolved]

NARRATIVE: CASE EVENT DATE: 201309
